FAERS Safety Report 9694738 (Version 1)
Quarter: 2013Q4

REPORT INFORMATION
  Report Type: Spontaneous
  Country: US (occurrence: US)
  Receive Date: 20131119
  Receipt Date: 20131119
  Transmission Date: 20140711
  Serious: No
  Sender: FDA-Public Use
  Company Number: US-BIOGENIDEC-2013BI108829

PATIENT
  Age: 58 Year
  Sex: Female

DRUGS (2)
  1. TYSABRI [Suspect]
     Indication: MULTIPLE SCLEROSIS
     Route: 042
     Dates: start: 20080903, end: 20100315
  2. TYSABRI [Suspect]
     Indication: MULTIPLE SCLEROSIS
     Route: 042
     Dates: start: 20111201

REACTIONS (23)
  - Stress [Unknown]
  - Musculoskeletal stiffness [Unknown]
  - Muscular weakness [Unknown]
  - Muscle spasms [Unknown]
  - Pain [Unknown]
  - Fall [Recovered/Resolved with Sequelae]
  - Gait disturbance [Unknown]
  - Colitis [Unknown]
  - Essential hypertension [Unknown]
  - Diastolic hypertension [Unknown]
  - Oedema [Unknown]
  - Affective disorder [Unknown]
  - Sleep apnoea syndrome [Unknown]
  - Complex regional pain syndrome [Unknown]
  - Tremor [Unknown]
  - Limb asymmetry [Unknown]
  - Asthma [Unknown]
  - Gastrooesophageal reflux disease [Unknown]
  - Arthralgia [Unknown]
  - Hypertension [Unknown]
  - Fatigue [Unknown]
  - Hepatic enzyme abnormal [Unknown]
  - Asthenia [Unknown]
